FAERS Safety Report 7549163-X (Version None)
Quarter: 2011Q2

REPORT INFORMATION
  Report Type: 
  Country: None (occurrence: None)
  Receive Date: 20110615
  Receipt Date: 20110602
  Transmission Date: 20111010
  Serious: Yes (Hospitalization)
  Sender: FDA-Public Use
  Company Number: PHHY2011AU48103

PATIENT
  Age: 69 Year
  Sex: Female

DRUGS (2)
  1. ACETAMINOPHEN [Concomitant]
     Dosage: UNK
  2. ZOLEDRONIC ACID [Suspect]
     Dosage: UNK

REACTIONS (2)
  - CHEST PAIN [None]
  - MYOCARDIAL INFARCTION [None]
